FAERS Safety Report 7270128-X (Version None)
Quarter: 2010Q4

REPORT INFORMATION
  Report Type: 
  Country: None (occurrence: None)
  Receive Date: 20101130
  Receipt Date: 20090903
  Transmission Date: 20110411
  Serious: Yes (Hospitalization, Other)
  Sender: FDA-Public Use
  Company Number: 2009SP024015

PATIENT
  Age: 21 Year
  Sex: Female
  Weight: 68.0396 kg

DRUGS (1)
  1. NUVARING [Suspect]
     Indication: CONTRACEPTION
     Dosage: QM; VAG
     Route: 067
     Dates: start: 20060101, end: 20070131

REACTIONS (8)
  - ATELECTASIS [None]
  - HEADACHE [None]
  - HYPERVENTILATION [None]
  - MUSCULOSKELETAL CHEST PAIN [None]
  - POISONING [None]
  - PULMONARY EMBOLISM [None]
  - PULMONARY INFARCTION [None]
  - URINARY TRACT INFECTION [None]
